FAERS Safety Report 8310714-9 (Version None)
Quarter: 2012Q2

REPORT INFORMATION
  Report Type: 
  Country: None (occurrence: None)
  Receive Date: 20120425
  Receipt Date: 20120411
  Transmission Date: 20120825
  Serious: Yes (Hospitalization)
  Sender: FDA-Public Use
  Company Number: US-UCBSA-048515

PATIENT
  Age: 75 Year
  Sex: Female
  Weight: 59.87 kg

DRUGS (30)
  1. CLONIDINE [Concomitant]
     Dates: start: 20080408
  2. CALCIUM + D [Concomitant]
     Indication: OSTEOPOROSIS
     Dates: start: 20000101
  3. DARVOCET [Concomitant]
     Indication: BACK PAIN
     Dosage: 1 TAB
     Dates: start: 20080507
  4. ARTIFICIAL TEARS [Concomitant]
     Indication: DRY EYE
     Dates: start: 20081003
  5. DOCUSATE [Concomitant]
     Indication: CONSTIPATION
     Dates: start: 20040101
  6. TUSSIONEX [Concomitant]
     Indication: COUGH
     Dates: start: 20090107
  7. SENNA [Concomitant]
     Indication: CONSTIPATION
     Dosage: QHS - ONCE AT BEDTIME
     Dates: start: 20070101
  8. STALEVO 100 [Concomitant]
     Indication: PARKINSON'S DISEASE
     Dosage: 37.5/150/200- 1 TAB
     Dates: start: 20080906
  9. HYDRALAZINE HCL [Concomitant]
     Indication: HYPERTENSION
     Dates: start: 20080324
  10. GENTAC [Concomitant]
     Indication: LACRIMATION INCREASED
     Dosage: QHS
     Route: 047
     Dates: start: 20111122
  11. MIRALAX [Concomitant]
     Indication: CONSTIPATION
     Dosage: 2 CAPSULES
     Dates: start: 20081014
  12. CARBAMAZEPINE [Concomitant]
     Indication: PROPHYLAXIS
     Dates: start: 20070101
  13. LORAZEPAM [Concomitant]
     Dosage: QHS
     Dates: start: 20100513
  14. LORAZEPAM [Concomitant]
     Dosage: QHS
     Dates: start: 20100513
  15. OMEPRAZOLE [Concomitant]
     Indication: GASTROOESOPHAGEAL REFLUX DISEASE
     Dosage: 40/1100, 1 CAP
     Dates: start: 20080718
  16. CLONIDINE [Concomitant]
     Indication: HYPERTENSION
     Dates: start: 20080318
  17. LEVOTHYROXINE SODIUM [Concomitant]
     Indication: HYPOTHYROIDISM
     Dates: start: 20010101
  18. CARVEDILOL [Concomitant]
     Indication: HYPERTENSION
     Dates: start: 20081014
  19. STALEVO 100 [Concomitant]
     Dosage: 37.5/150/200,1 TAB
     Dates: start: 20091002
  20. IBUPROFEN [Concomitant]
     Indication: BACK PAIN
     Dates: start: 20090311
  21. ROTIGOTINE [Suspect]
     Indication: PARKINSON'S DISEASE
     Route: 062
     Dates: start: 20090702
  22. LORAZEPAM [Concomitant]
     Indication: INSOMNIA
     Dates: start: 20080424
  23. MEGESTROL ACETATE [Concomitant]
     Indication: DECREASED APPETITE
     Dates: start: 20090731
  24. SERTRALINE HYDROCHLORIDE [Concomitant]
     Indication: DEPRESSION
     Dates: start: 20080715
  25. GAVISCON [Concomitant]
     Indication: GASTROOESOPHAGEAL REFLUX DISEASE
     Dosage: 1 TAB
     Dates: start: 20080216
  26. FUROSEMIDE [Concomitant]
     Indication: OEDEMA
     Dates: start: 20090501
  27. LORAZEPAM [Concomitant]
     Indication: ANXIETY
     Dates: start: 20080424
  28. SIMVASTATIN [Concomitant]
     Indication: HYPERCHOLESTEROLAEMIA
     Dates: start: 20090114
  29. ACETAMINOPHEN [Concomitant]
     Indication: BACK PAIN
     Dates: start: 20000101
  30. PATANOL [Concomitant]
     Indication: DRY EYE
     Dates: start: 20081003

REACTIONS (1)
  - DEEP VEIN THROMBOSIS [None]
